FAERS Safety Report 6209429-2 (Version None)
Quarter: 2009Q2

REPORT INFORMATION
  Report Type: 
  Country: None (occurrence: None)
  Receive Date: 20090601
  Receipt Date: 20090521
  Transmission Date: 20091009
  Serious: Yes (Death, Hospitalization)
  Sender: FDA-Public Use
  Company Number: BR-ROCHE-634287

PATIENT
  Sex: Male
  Weight: 75 kg

DRUGS (2)
  1. PEG-INTERFERON ALFA 2A (RO 25-8310) [Suspect]
     Indication: HEPATITIS C
     Dosage: DOSE REPORTED AS: 180 UG/0.5 ML.
     Route: 058
  2. RIBAVIRIN [Concomitant]
     Indication: HEPATITIS C
     Route: 048

REACTIONS (2)
  - HAEMORRHAGIC STROKE [None]
  - MALAISE [None]
